FAERS Safety Report 6190840-3 (Version None)
Quarter: 2009Q2

REPORT INFORMATION
  Report Type: 
  Country: None (occurrence: None)
  Receive Date: 20090514
  Receipt Date: 20090506
  Transmission Date: 20091009
  Serious: Yes (Other)
  Sender: FDA-Public Use
  Company Number: BR-JNJCH-2009013113

PATIENT
  Sex: Female

DRUGS (1)
  1. LISTERINE [Suspect]
     Indication: DENTAL DISORDER PROPHYLAXIS
     Dosage: TEXT:UNSPECIFIED
     Route: 048
     Dates: start: 20090504, end: 20090504

REACTIONS (4)
  - DYSGEUSIA [None]
  - GLOSSODYNIA [None]
  - PAROSMIA [None]
  - PRODUCT COUNTERFEIT [None]
